FAERS Safety Report 19028160 (Version 2)
Quarter: 2021Q3

REPORT INFORMATION
  Report Type: Report from Study
  Country: CA (occurrence: CA)
  Receive Date: 20210318
  Receipt Date: 20210928
  Transmission Date: 20211014
  Serious: Yes (Other)
  Sender: FDA-Public Use
  Company Number: CA-BAUSCH-BL-2021-008882

PATIENT
  Age: 82 Year
  Sex: Female

DRUGS (2)
  1. SILIQ [Suspect]
     Active Substance: BRODALUMAB
     Indication: PSORIASIS
     Dosage: 210MG/1.5 ML
     Route: 058
     Dates: start: 20210129, end: 20210212
  2. SILIQ [Suspect]
     Active Substance: BRODALUMAB
     Dosage: 210MG/1.5 ML
     Route: 058
     Dates: start: 20210226, end: 20210910

REACTIONS (3)
  - Feeling drunk [Unknown]
  - Gait disturbance [Unknown]
  - Bundle branch block left [Unknown]

NARRATIVE: CASE EVENT DATE: 2021
